FAERS Safety Report 5127390-9 (Version None)
Quarter: 2006Q4

REPORT INFORMATION
  Report Type: 
  Country: None (occurrence: None)
  Receive Date: 20061013
  Receipt Date: 20061013
  Transmission Date: 20070319
  Serious: Yes (Hospitalization)
  Sender: FDA-Public Use
  Company Number: None

PATIENT
  Age: 60 Year
  Sex: Male
  Weight: 64.8644 kg

DRUGS (1)
  1. WARFARIN   5 MG [Suspect]
     Dosage: 5 MG DAILY PO
     Route: 048
     Dates: start: 20040701, end: 20061008

REACTIONS (9)
  - CHRONIC OBSTRUCTIVE PULMONARY DISEASE [None]
  - CONFUSIONAL STATE [None]
  - DEHYDRATION [None]
  - DRUG TOXICITY [None]
  - HYPERKALAEMIA [None]
  - MENTAL STATUS CHANGES [None]
  - PNEUMONIA [None]
  - UPPER GASTROINTESTINAL HAEMORRHAGE [None]
  - UROSEPSIS [None]
